FAERS Safety Report 5168869-3 (Version None)
Quarter: 2006Q4

REPORT INFORMATION
  Report Type: 
  Country: None (occurrence: None)
  Receive Date: 20061206
  Receipt Date: 20061206
  Transmission Date: 20070319
  Serious: Yes (Congenital Anomaly)
  Sender: FDA-Public Use
  Company Number: None

PATIENT
  Sex: Male
  Weight: 8 kg

DRUGS (1)
  1. METFORMIN HCL [Suspect]
     Indication: INFERTILITY
     Dosage: 2000MG  DAILY  PO
     Route: 048

REACTIONS (4)
  - CONGENITAL ANOMALY [None]
  - DRUG EXPOSURE DURING PREGNANCY [None]
  - OCULOAURICULOVERTEBRAL DYSPLASIA [None]
  - SPINAL DEFORMITY [None]
